FAERS Safety Report 8093974-1 (Version None)
Quarter: 2012Q1

REPORT INFORMATION
  Report Type: 
  Country: None (occurrence: None)
  Receive Date: 20120130
  Receipt Date: 20120126
  Transmission Date: 20120608
  Serious: Yes (Life-Threatening, Hospitalization, Other)
  Sender: FDA-Public Use
  Company Number: US-AMGEN-USASP2012005514

PATIENT
  Age: 54 Year
  Sex: Female
  Weight: 68 kg

DRUGS (6)
  1. PACLITAXEL [Suspect]
     Indication: BREAST CANCER
     Dosage: 80 MG/M2, PER CHEMO REGIM
     Route: 042
     Dates: start: 20110811
  2. CYCLOPHOSPHAMIDE [Suspect]
     Indication: BREAST CANCER
     Dosage: 600 MG/M2, PER CHEMO REGIM
     Route: 042
  3. NEULASTA [Suspect]
     Indication: CHEMOTHERAPY
  4. BEVACIZUMAB [Suspect]
     Indication: BREAST CANCER
     Dosage: 10 MG/KG, PER CHEMO REGIM
     Dates: start: 20110811
  5. CARBOPLATIN [Suspect]
     Indication: BREAST CANCER
     Dosage: 6 DF, PER CHEMO REGIM
     Route: 042
     Dates: start: 20110811
  6. DOXORUBICIN HCL [Suspect]
     Indication: BREAST CANCER
     Dosage: 60 MG/M2, PER CHEMO REGIM
     Route: 042

REACTIONS (4)
  - WHITE BLOOD CELL COUNT DECREASED [None]
  - PLATELET COUNT DECREASED [None]
  - FEBRILE NEUTROPENIA [None]
  - ANAEMIA [None]
